FAERS Safety Report 10485964 (Version 1)
Quarter: 2014Q3

REPORT INFORMATION
  Report Type: Spontaneous
  Country: US (occurrence: None)
  Receive Date: 20140929
  Receipt Date: 20140929
  Transmission Date: 20150326
  Serious: Yes (Death, Hospitalization, Other)
  Sender: FDA-Public Use
  Company Number: 2014SCAL000115

PATIENT
  Age: 21 Year
  Sex: Female

DRUGS (4)
  1. LAMOTRIGINE. [Suspect]
     Active Substance: LAMOTRIGINE
     Indication: CONVULSION
  2. PHENOBARBITAL. [Concomitant]
     Active Substance: PHENOBARBITAL
  3. LEVETIRACETAM. [Concomitant]
     Active Substance: LEVETIRACETAM
  4. PHENYTOIN. [Concomitant]
     Active Substance: PHENYTOIN

REACTIONS (13)
  - Hepatitis [None]
  - Diarrhoea [None]
  - Multi-organ failure [None]
  - Drug reaction with eosinophilia and systemic symptoms [None]
  - Enteritis [None]
  - Stevens-Johnson syndrome [None]
  - Pancreatitis [None]
  - Colitis [None]
  - Histiocytosis haematophagic [None]
  - Thrombocytopenia [None]
  - Hypotension [None]
  - Infection [None]
  - Gastrointestinal injury [None]
